FAERS Safety Report 10342063 (Version 1)
Quarter: 2014Q3

REPORT INFORMATION
  Report Type: Spontaneous
  Country: CA (occurrence: CA)
  Receive Date: 20140725
  Receipt Date: 20140725
  Transmission Date: 20150326
  Serious: Yes (Disabling, Other)
  Sender: FDA-Public Use
  Company Number: CA-NOVOPROD-416953

PATIENT
  Sex: Female
  Weight: 56 kg

DRUGS (1)
  1. VAGIFEM? 10 [Suspect]
     Active Substance: ESTRADIOL HEMIHYDRATE
     Indication: PRODUCT USED FOR UNKNOWN INDICATION
     Dosage: 1 DOSAGE FORM, QD (DURATION: 2 WEEKS)
     Route: 065

REACTIONS (5)
  - Muscular weakness [Not Recovered/Not Resolved]
  - Hypoaesthesia [Not Recovered/Not Resolved]
  - Skin plaque [Not Recovered/Not Resolved]
  - Pain in extremity [Not Recovered/Not Resolved]
  - Skin discolouration [Not Recovered/Not Resolved]
